FAERS Safety Report 9086415 (Version 1)
Quarter: 2013Q1

REPORT INFORMATION
  Report Type: Report from Study
  Country: US (occurrence: US)
  Receive Date: 20130131
  Receipt Date: 20130131
  Transmission Date: 20140127
  Serious: No
  Sender: FDA-Public Use
  Company Number: US-ABBOTT-12P-163-0989577-00

PATIENT
  Age: 66 Year
  Sex: Male

DRUGS (20)
  1. HUMIRA [Suspect]
     Indication: CROHN^S DISEASE
     Dates: start: 201203
  2. JANUVIA [Concomitant]
     Indication: DIABETES MELLITUS
  3. METFORMIN [Concomitant]
     Indication: DIABETES MELLITUS
  4. MULTAQ [Concomitant]
     Indication: HEART RATE IRREGULAR
  5. LISINOPRIL [Concomitant]
     Indication: HYPERTENSION
  6. FUROSEMIDE [Concomitant]
     Indication: PULMONARY OEDEMA
     Dosage: 20MG QD PRN
  7. GLYBURIDED [Concomitant]
     Indication: DIABETES MELLITUS
  8. FINASTERIDE [Concomitant]
     Indication: PROSTATIC DISORDER
  9. ASACOL [Concomitant]
     Indication: PRODUCT USED FOR UNKNOWN INDICATION
  10. CALCIUM CITRATE+MAGNESIUM AND ZINC [Concomitant]
     Indication: OSTEOPOROSIS
  11. NATURE MADE IRON [Concomitant]
     Indication: ANAEMIA
  12. MULTIVITAMIN [Concomitant]
     Indication: PRODUCT USED FOR UNKNOWN INDICATION
  13. OMEGA-3 FISH OIL [Concomitant]
     Indication: PRODUCT USED FOR UNKNOWN INDICATION
  14. POTASSIUM CHLORIDE [Concomitant]
     Indication: BLOOD POTASSIUM
  15. GEMFIBROZIL [Concomitant]
     Indication: BLOOD CHOLESTEROL
  16. LOPERAMIDE HCL [Concomitant]
     Indication: DIARRHOEA
  17. RANITIDINE [Concomitant]
     Indication: GASTRIC PH INCREASED
  18. ADVIL [Concomitant]
     Indication: PRODUCT USED FOR UNKNOWN INDICATION
  19. GABAPENTIN [Concomitant]
     Indication: CARPAL TUNNEL SYNDROME
     Dosage: 2 CAP QHS X 3 DAYS INCREASE BY 1 Q3D PRN
  20. GABAPENTIN [Concomitant]
     Indication: ARTHRALGIA

REACTIONS (3)
  - Drug dose omission [Unknown]
  - Device malfunction [Unknown]
  - Injection site pain [Recovered/Resolved]
